FAERS Safety Report 12737337 (Version 1)
Quarter: 2016Q3

REPORT INFORMATION
  Report Type: Spontaneous
  Country: US (occurrence: US)
  Receive Date: 20160910
  Receipt Date: 20160910
  Transmission Date: 20161109
  Serious: Yes (Other)
  Sender: FDA-Public Use
  Company Number: None

PATIENT

DRUGS (1)
  1. AVASTIN [Suspect]
     Active Substance: BEVACIZUMAB

REACTIONS (3)
  - Metamorphopsia [None]
  - Medication residue present [None]
  - Ocular discomfort [None]

NARRATIVE: CASE EVENT DATE: 20160202
